FAERS Safety Report 16938469 (Version 3)
Quarter: 2020Q4

REPORT INFORMATION
  Report Type: Spontaneous
  Country: MY (occurrence: MY)
  Receive Date: 20191019
  Receipt Date: 20201219
  Transmission Date: 20210113
  Serious: Yes (Hospitalization)
  Sender: FDA-Public Use
  Company Number: NVSC2019MY002923

PATIENT
  Age: 33 Year
  Sex: Female

DRUGS (2)
  1. CURAM TABLETS 625MG [Suspect]
     Active Substance: AMOXICILLIN\CLAVULANATE POTASSIUM
     Indication: INFECTION PROPHYLAXIS
     Dosage: 625 MG, BID
     Route: 048
     Dates: start: 20190930, end: 20191003
  2. CURAM TABLETS 625MG [Suspect]
     Active Substance: AMOXICILLIN\CLAVULANATE POTASSIUM
     Indication: WOUND

REACTIONS (2)
  - Drug hypersensitivity [Unknown]
  - Loss of consciousness [Unknown]

NARRATIVE: CASE EVENT DATE: 20190930
